FAERS Safety Report 8461921-6 (Version None)
Quarter: 2012Q2

REPORT INFORMATION
  Report Type: 
  Country: None (occurrence: None)
  Receive Date: 20120625
  Receipt Date: 20120614
  Transmission Date: 20120825
  Serious: Yes (Other)
  Sender: FDA-Public Use
  Company Number: DE-PFIZER INC-2012149921

PATIENT
  Age: 45 Year
  Sex: Male
  Weight: 70 kg

DRUGS (3)
  1. BIAXIN [Concomitant]
     Indication: DUODENAL ULCER
     Dosage: 2 DF, 1X/DAY
     Route: 048
  2. PANTOPRAZOLE [Suspect]
     Indication: DUODENAL ULCER
     Dosage: 40 MG, 2 DF, 1X/DAY
     Route: 048
  3. AMOXICILLIN [Concomitant]
     Indication: DUODENAL ULCER
     Dosage: 3000 MG, UNK
     Route: 048

REACTIONS (1)
  - ERECTILE DYSFUNCTION [None]
